FAERS Safety Report 15894926 (Version 1)
Quarter: 2019Q1

REPORT INFORMATION
  Report Type: Spontaneous
  Country: US (occurrence: US)
  Receive Date: 20190109
  Receipt Date: 20190109
  Transmission Date: 20190417
  Serious: Yes (Other)
  Sender: FDA-Public Use
  Company Number: None

PATIENT
  Age: 64 Year
  Sex: Female
  Weight: 58.97 kg

DRUGS (3)
  1. PLENVU [Suspect]
     Active Substance: ASCORBIC ACID\POLYETHYLENE GLYCOL 3350\POTASSIUM CHLORIDE\SODIUM ASCORBATE\SODIUM CHLORIDE\SODIUM SULFATE
     Dosage: ?          QUANTITY:DOSE 2 POUCH A + B;OTHER FREQUENCY:DAY 2: 2AM;?
     Route: 048
     Dates: start: 20181130, end: 20181201
  2. VALSARTAN HCTZ [Concomitant]
     Active Substance: HYDROCHLOROTHIAZIDE\VALSARTAN
  3. PLENVU [Suspect]
     Active Substance: ASCORBIC ACID\POLYETHYLENE GLYCOL 3350\POTASSIUM CHLORIDE\SODIUM ASCORBATE\SODIUM CHLORIDE\SODIUM SULFATE
     Indication: COLONOSCOPY
     Dosage: DOSE 1, DOSE 2 POUCH A, DOSE 2 POUCH B?DAY 1: 4PM-8PM, DAY 2: 2AM, POWDER RECONSTITUTED IN WATER
     Route: 048
     Dates: start: 20181130, end: 20181201

REACTIONS (1)
  - Vomiting [None]
